FAERS Safety Report 9186905 (Version 2)
Quarter: 2013Q2

REPORT INFORMATION
  Report Type: Spontaneous
  Country: US (occurrence: US)
  Receive Date: 20130325
  Receipt Date: 20130606
  Transmission Date: 20140414
  Serious: No
  Sender: FDA-Public Use
  Company Number: US-PFIZER INC-2013096291

PATIENT
  Age: 35 Year
  Sex: Male
  Weight: 104.31 kg

DRUGS (4)
  1. PRISTIQ [Suspect]
     Indication: BIPOLAR DISORDER
     Dosage: 100 MG, 1X/DAY
     Route: 048
  2. PRISTIQ [Suspect]
     Indication: ANXIETY
  3. PRISTIQ [Suspect]
     Indication: DEPRESSION
  4. CITALOPRAM [Concomitant]
     Dosage: 40 MG, 1X/DAY

REACTIONS (3)
  - Drug screen false positive [Unknown]
  - Off label use [Unknown]
  - Drug screen positive [Unknown]
